FAERS Safety Report 11161564 (Version 1)
Quarter: 2015Q2

REPORT INFORMATION
  Report Type: Spontaneous
  Country: US (occurrence: US)
  Receive Date: 20150604
  Receipt Date: 20150604
  Transmission Date: 20150821
  Serious: No
  Sender: FDA-Public Use
  Company Number: US-SA-2014SA085896

PATIENT
  Age: 65 Year
  Sex: Male

DRUGS (16)
  1. PRAVASTATIN [Concomitant]
     Active Substance: PRAVASTATIN\PRAVASTATIN SODIUM
     Dosage: STRENGTH: 20 MG?1 TAB NIGHT
  2. PANTHENOL/RETINOL/THIAMINE HYDROCHLORIDE/ASCORBIC ACID/ERGOCALCIFEROL/FOLIC ACID/RIBOFLAVIN/NICOTINA [Concomitant]
     Dosage: 1 TAB MORNING
  3. METFORMIN [Concomitant]
     Active Substance: METFORMIN HYDROCHLORIDE
  4. GLIPIZIDE. [Concomitant]
     Active Substance: GLIPIZIDE
     Dosage: 1 TAB MORNING AND 1 TAB NIGHT?STRENGTH: 10 MG
  5. LEVEMIR [Concomitant]
     Active Substance: INSULIN DETEMIR
  6. AMLODIPINE BESILATE [Concomitant]
     Active Substance: AMLODIPINE BESYLATE
     Dosage: 5 MG?1 TAB MORNING
  7. LISINOPRIL. [Concomitant]
     Active Substance: LISINOPRIL
     Dosage: 5 MG?1 TAB MORNING
  8. LANTUS SOLOSTAR [Suspect]
     Active Substance: INSULIN GLARGINE
     Indication: TYPE 2 DIABETES MELLITUS
     Dosage: STRENGTH: 300 ML PEN; 3ML/PEN?70 UNITS IN MORNING 40 UNITS NIGHTTIME TWICE DAILY?100 UNITS PER 1 ML
     Route: 065
     Dates: start: 2014
  9. SOLOSTAR [Concomitant]
     Active Substance: DEVICE
  10. ATENOLOL. [Concomitant]
     Active Substance: ATENOLOL
     Dosage: STRENGTH: 50 MG?1 TAB MORNING
  11. APIDRA SOLOSTAR [Concomitant]
     Active Substance: INSULIN GLULISINE
  12. VICTOZA [Concomitant]
     Active Substance: LIRAGLUTIDE
  13. OMEPRAZOLE. [Concomitant]
     Active Substance: OMEPRAZOLE
     Dosage: STRENGTH: 20 MG?1 CAP MORNING
  14. LANTUS SOLOSTAR [Suspect]
     Active Substance: INSULIN GLARGINE
     Indication: TYPE 2 DIABETES MELLITUS
     Dosage: STRENGTH: 300 ML PEN; 3ML/PEN?70 UNITS IN MORNING 40 UNITS NIGHTTIME TWICE DAILY?100 UNITS PER 1 ML
     Route: 065
     Dates: start: 2014
  15. HUMULIN NOS [Concomitant]
     Active Substance: INSULIN HUMAN
  16. SOLOSTAR [Concomitant]
     Active Substance: DEVICE
     Indication: TYPE 2 DIABETES MELLITUS

REACTIONS (5)
  - Drug administration error [Unknown]
  - Injection site pain [Recovering/Resolving]
  - Injection site extravasation [Unknown]
  - Injection site erythema [Not Recovered/Not Resolved]
  - Injection site nodule [Not Recovered/Not Resolved]

NARRATIVE: CASE EVENT DATE: 2014
